FAERS Safety Report 13034647 (Version 3)
Quarter: 2018Q2

REPORT INFORMATION
  Report Type: Spontaneous
  Country: US (occurrence: US)
  Receive Date: 20161216
  Receipt Date: 20180420
  Transmission Date: 20180711
  Serious: Yes (Other)
  Sender: FDA-Public Use
  Company Number: US-SAOL THERAPEUTICS-2016SAO01222

PATIENT
  Age: 54 Year
  Sex: Male
  Weight: 71.66 kg

DRUGS (3)
  1. LIORESAL [Suspect]
     Active Substance: BACLOFEN
     Indication: HEREDITARY SPASTIC PARAPLEGIA
  2. LIORESAL [Suspect]
     Active Substance: BACLOFEN
     Indication: MUSCLE SPASTICITY
     Dosage: 240.52 ?G, \DAY
     Route: 037
     Dates: start: 20101007
  3. LIORESAL [Suspect]
     Active Substance: BACLOFEN
     Indication: MUSCLE SPASTICITY

REACTIONS (4)
  - Pancreatic disorder [Unknown]
  - Hepatic failure [Unknown]
  - Myocardial necrosis marker increased [Unknown]
  - Device battery issue [Recovering/Resolving]

NARRATIVE: CASE EVENT DATE: 2016
